FAERS Safety Report 25177394 (Version 2)
Quarter: 2025Q2

REPORT INFORMATION
  Report Type: Spontaneous
  Country: SI (occurrence: SI)
  Receive Date: 20250409
  Receipt Date: 20250416
  Transmission Date: 20250716
  Serious: Yes (Other)
  Sender: CELLTRION
  Company Number: SI-JNJFOC-20241008572

PATIENT

DRUGS (5)
  1. RITUXIMAB [Suspect]
     Active Substance: RITUXIMAB
     Indication: Chronic lymphocytic leukaemia
     Route: 050
  2. CYCLOPHOSPHAMIDE\DOXORUBICIN\PREDNISONE\VINCRISTINE [Suspect]
     Active Substance: CYCLOPHOSPHAMIDE\DOXORUBICIN\PREDNISONE\VINCRISTINE
     Indication: Chronic lymphocytic leukaemia
     Route: 050
  3. IMBRUVICA [Suspect]
     Active Substance: IBRUTINIB
     Indication: Chronic lymphocytic leukaemia
     Route: 048
     Dates: start: 2021, end: 2022
  4. VENETOCLAX [Suspect]
     Active Substance: VENETOCLAX
     Indication: Chronic lymphocytic leukaemia
     Route: 050
  5. POTASSIUM HYDROXIDE [Concomitant]
     Active Substance: POTASSIUM HYDROXIDE
     Dates: start: 202207, end: 202209

REACTIONS (5)
  - Atrial fibrillation [Unknown]
  - Pancytopenia [Unknown]
  - Thrombocytopenia [Unknown]
  - Hyperhidrosis [Unknown]
  - Pyrexia [Unknown]
